FAERS Safety Report 8300937-7 (Version None)
Quarter: 2012Q2

REPORT INFORMATION
  Report Type: 
  Country: None (occurrence: None)
  Receive Date: 20120418
  Receipt Date: 20120418
  Transmission Date: 20120825
  Serious: Yes (Hospitalization)
  Sender: FDA-Public Use
  Company Number: None

PATIENT
  Sex: Male
  Weight: 76.8847 kg

DRUGS (14)
  1. INDOMETHACIN [Concomitant]
  2. SERTRALINE HYDROCHLORIDE [Concomitant]
  3. VIT D3 [Concomitant]
  4. SPIRONOLACTONE [Concomitant]
  5. HYDROCHLOROTHIAZIDE [Concomitant]
  6. ASPIRIN [Concomitant]
  7. SIMVASTATIN [Concomitant]
  8. ALLOPURINOL [Concomitant]
  9. LISINOPRIL [Concomitant]
  10. ASCORBIC ACID [Concomitant]
  11. DOCUSATE [Concomitant]
  12. JANUVIA [Suspect]
     Indication: TYPE 2 DIABETES MELLITUS
     Dosage: 50MG QDAY PO
     Route: 048
  13. ADVAIR DISKUS 100/50 [Concomitant]
  14. M.V.I. [Concomitant]

REACTIONS (1)
  - PANCREATITIS ACUTE [None]
